FAERS Safety Report 12692869 (Version 1)
Quarter: 2016Q3

REPORT INFORMATION
  Report Type: Spontaneous
  Country: US (occurrence: US)
  Receive Date: 20160829
  Receipt Date: 20160829
  Transmission Date: 20161109
  Serious: Yes (Other)
  Sender: FDA-Public Use
  Company Number: US-BAYER-2016-163444

PATIENT
  Age: 89 Year
  Sex: Male
  Weight: 72.11 kg

DRUGS (6)
  1. ALLOPURINOL. [Concomitant]
     Active Substance: ALLOPURINOL
     Dosage: 1 DF, QD
     Route: 048
  2. GABAPENTIN. [Concomitant]
     Active Substance: GABAPENTIN
     Dosage: 1 DF, TID
     Route: 048
  3. DULOXETINE. [Concomitant]
     Active Substance: DULOXETINE
     Dosage: 1 DF, QD
     Route: 048
  4. LISINOPRIL. [Concomitant]
     Active Substance: LISINOPRIL
     Dosage: 1 DF, QD
     Route: 048
  5. ALEVE [Suspect]
     Active Substance: NAPROXEN SODIUM
     Dosage: UNK
  6. HYDROCHLOROTHIAZIDE. [Concomitant]
     Active Substance: HYDROCHLOROTHIAZIDE
     Indication: OEDEMA
     Dosage: 1 DF, QOD

REACTIONS (2)
  - Gastric ulcer haemorrhage [None]
  - Drug hypersensitivity [None]
